FAERS Safety Report 7980753-6 (Version None)
Quarter: 2011Q4

REPORT INFORMATION
  Report Type: 
  Country: None (occurrence: None)
  Receive Date: 20111214
  Receipt Date: 20111103
  Transmission Date: 20120403
  Serious: No
  Sender: FDA-Public Use
  Company Number: US-BAYER-2011-111717

PATIENT
  Age: 70 Year
  Sex: Female

DRUGS (2)
  1. BAYER AM EXTRA STRENGTH [Suspect]
     Indication: SCOLIOSIS
  2. ALEVE (CAPLET) [Suspect]

REACTIONS (1)
  - NO ADVERSE EVENT [None]
